FAERS Safety Report 8397738 (Version 5)
Quarter: 2013Q2

REPORT INFORMATION
  Report Type: Spontaneous
  Country: AR (occurrence: AR)
  Receive Date: 20120209
  Receipt Date: 20130517
  Transmission Date: 20140414
  Serious: Yes (Hospitalization, Other)
  Sender: FDA-Public Use
  Company Number: AR-ROCHE-1025663

PATIENT
  Age: 85 Year
  Sex: Female

DRUGS (6)
  1. LUCENTIS [Suspect]
     Indication: MACULOPATHY
     Dosage: DOSE OF FOUR TOTAL AMPOULES
     Route: 050
     Dates: start: 201101
  2. LUCENTIS [Suspect]
     Route: 050
     Dates: start: 201105
  3. LUCENTIS [Suspect]
     Route: 050
     Dates: start: 201106
  4. LUCENTIS [Suspect]
     Route: 050
     Dates: start: 201111
  5. LUCENTIS [Suspect]
     Route: 050
     Dates: start: 201204
  6. DIOVAN [Concomitant]

REACTIONS (7)
  - Pancreatitis [Recovering/Resolving]
  - Arthralgia [Not Recovered/Not Resolved]
  - Oedema peripheral [Not Recovered/Not Resolved]
  - Diarrhoea [Recovered/Resolved]
  - Visual acuity reduced [Not Recovered/Not Resolved]
  - Eye disorder [Unknown]
  - Gait disturbance [Not Recovered/Not Resolved]
